FAERS Safety Report 8498649-2 (Version None)
Quarter: 2012Q3

REPORT INFORMATION
  Report Type: 
  Country: None (occurrence: None)
  Receive Date: 20120709
  Receipt Date: 20120628
  Transmission Date: 20120928
  Serious: Yes (Other)
  Sender: FDA-Public Use
  Company Number: US-AMGEN-USASP2011029773

PATIENT
  Age: 68 Year
  Sex: Female

DRUGS (1)
  1. ENBREL [Suspect]
     Indication: RHEUMATOID ARTHRITIS
     Dosage: 50 MG, QWK
     Dates: start: 20110526, end: 20110616

REACTIONS (6)
  - DRUG HYPERSENSITIVITY [None]
  - ARTHRALGIA [None]
  - RHEUMATOID ARTHRITIS [None]
  - FEELING ABNORMAL [None]
  - DRUG INEFFECTIVE [None]
  - FATIGUE [None]
